FAERS Safety Report 19525327 (Version 1)
Quarter: 2021Q3

REPORT INFORMATION
  Report Type: Report from Study
  Country: IT (occurrence: IT)
  Receive Date: 20210713
  Receipt Date: 20210713
  Transmission Date: 20211014
  Serious: Yes (Death)
  Sender: FDA-Public Use
  Company Number: IT-GW PHARMA-202107ITGW03236

PATIENT

DRUGS (5)
  1. CLOBAZAM. [Concomitant]
     Active Substance: CLOBAZAM
     Indication: SEIZURE
     Dosage: 1 MILLIGRAM/KILOGRAM, QD
     Route: 065
  2. PREGABALIN. [Concomitant]
     Active Substance: PREGABALIN
     Indication: SEIZURE
     Dosage: 2.6 MILLIGRAM/KILOGRAM, QD
     Route: 065
  3. LEVETIRACETAM. [Concomitant]
     Active Substance: LEVETIRACETAM
     Indication: SEIZURE
     Dosage: 63 MILLIGRAM/KILOGRAM, QD
     Route: 065
  4. EPIDIOLEX [Suspect]
     Active Substance: CANNABIDIOL
     Indication: WILLIAMS SYNDROME
     Dosage: 50 MILLIGRAM, BID
     Route: 048
  5. EPIDIOLEX [Suspect]
     Active Substance: CANNABIDIOL
     Indication: EPILEPTIC ENCEPHALOPATHY
     Dosage: 20 MG/KG/DAY, 200 MILLIGRAM, BID
     Route: 048

REACTIONS (2)
  - Therapeutic response unexpected [Unknown]
  - Pneumonia [Fatal]
